FAERS Safety Report 8371171-X (Version None)
Quarter: 2012Q2

REPORT INFORMATION
  Report Type: 
  Country: None (occurrence: None)
  Receive Date: 20120517
  Receipt Date: 20120507
  Transmission Date: 20120825
  Serious: Yes (Death, Other)
  Sender: FDA-Public Use
  Company Number: 2012P1025025

PATIENT

DRUGS (2)
  1. CHEMOTHERAPY [Concomitant]
  2. GRANISETRON [Suspect]
     Indication: NEOPLASM MALIGNANT
     Dosage: 2 MG; PO
     Route: 048

REACTIONS (1)
  - MEGACOLON [None]
